FAERS Safety Report 9212507 (Version 1)
Quarter: 2013Q2

REPORT INFORMATION
  Report Type: Spontaneous
  Country: CN (occurrence: CN)
  Receive Date: 20130405
  Receipt Date: 20130405
  Transmission Date: 20140414
  Serious: Yes (Other)
  Sender: FDA-Public Use
  Company Number: CN-009507513-1304CHN001166

PATIENT
  Age: 60 Year
  Sex: Male

DRUGS (1)
  1. ZOCOR [Suspect]
     Indication: HYPERLIPIDAEMIA
     Dosage: 40 MG, ONCE A DAY
     Route: 048
     Dates: start: 201303, end: 201303

REACTIONS (2)
  - Renal failure [Not Recovered/Not Resolved]
  - Rhabdomyolysis [Not Recovered/Not Resolved]
